FAERS Safety Report 4612890-8 (Version None)
Quarter: 2005Q1

REPORT INFORMATION
  Report Type: 
  Country: None (occurrence: None)
  Receive Date: 20050318
  Receipt Date: 20050215
  Transmission Date: 20050727
  Serious: Yes (Hospitalization)
  Sender: FDA-Public Use
  Company Number: US-GLAXOSMITHKLINE-A0545731A

PATIENT
  Age: 67 Year
  Sex: Female

DRUGS (24)
  1. ADVAIR DISKUS 100/50 [Suspect]
     Indication: ASTHMA
     Dosage: 1PUFF PER DAY
     Route: 055
     Dates: start: 20030901
  2. ESTRACE [Concomitant]
     Indication: HYSTERECTOMY
     Dosage: 1MG PER DAY
     Route: 048
  3. PIROXICAM [Concomitant]
     Indication: ARTHRALGIA
     Dosage: 20MG PER DAY
     Route: 048
  4. NEURONTIN [Concomitant]
     Dosage: 300MG PER DAY
     Route: 048
  5. PREVACID [Concomitant]
     Dosage: 30MG PER DAY
  6. NORVASC [Concomitant]
     Dosage: 5MG PER DAY
  7. ZYRTEC [Concomitant]
     Dosage: 10MG PER DAY
     Dates: start: 20040610
  8. CLONAZEPAM [Concomitant]
     Dosage: .5MG PER DAY
  9. NASACORT [Concomitant]
     Dosage: 4SPR PER DAY
     Route: 045
  10. PREVACID [Concomitant]
     Dosage: 30MG PER DAY
  11. LIPITOR [Concomitant]
     Dosage: 20MG PER DAY
  12. MULTIPLE VITAMIN [Concomitant]
  13. BENEFIBER [Concomitant]
  14. CALCIUM + D [Concomitant]
  15. TUMS [Concomitant]
  16. AXERT [Concomitant]
     Dosage: 12.5MG AS REQUIRED
  17. AMERGE [Concomitant]
     Dosage: 2.5MG AS REQUIRED
  18. IMITREX [Concomitant]
     Dosage: 100MG AS REQUIRED
  19. ASTELIN [Concomitant]
     Dosage: 4SPR PER DAY
  20. PROVENTIL [Concomitant]
  21. AMBIEN [Concomitant]
  22. MIRALAX [Concomitant]
  23. BENICAR [Concomitant]
  24. FIORINAL W/CODEINE [Concomitant]

REACTIONS (4)
  - BLOOD PRESSURE DECREASED [None]
  - DEHYDRATION [None]
  - DYSPNOEA [None]
  - PHARMACEUTICAL PRODUCT COMPLAINT [None]
